FAERS Safety Report 9495866 (Version 1)
Quarter: 2013Q3

REPORT INFORMATION
  Report Type: Spontaneous
  Country: CH (occurrence: CH)
  Receive Date: 20130903
  Receipt Date: 20130903
  Transmission Date: 20140515
  Serious: Yes (Hospitalization)
  Sender: FDA-Public Use
  Company Number: PHHY2013CH094035

PATIENT
  Age: 76 Year
  Sex: Male

DRUGS (15)
  1. DIGOXIN [Suspect]
     Indication: ATRIAL FIBRILLATION
     Dosage: 0.25 MG, UNK
     Route: 048
     Dates: start: 20130404
  2. DIGOXIN [Interacting]
     Indication: CARDIAC FLUTTER
     Dosage: UNK UKN, UNK
     Route: 048
  3. ZOLPIDEM [Interacting]
     Indication: INSOMNIA
     Dosage: 10 MG, QD
     Route: 048
     Dates: start: 20090831, end: 20130810
  4. SEVREDOL [Interacting]
     Indication: PAIN
     Dosage: 5 MG, UNK
     Route: 048
     Dates: start: 20090812, end: 20130810
  5. TARGIN [Interacting]
     Indication: PAIN
     Dosage: 1 DF QD
     Route: 048
     Dates: start: 20120427, end: 20130810
  6. SPASMO-URGENIN NEO [Interacting]
     Indication: PAIN
     Dosage: 20 MG, QD
     Route: 048
     Dates: start: 20120829, end: 20130810
  7. EMSELEX [Interacting]
     Indication: BENIGN PROSTATIC HYPERPLASIA
     Dosage: 15 MG, UNK
     Route: 040
     Dates: start: 20091028, end: 20130810
  8. REMERON [Interacting]
     Indication: INSOMNIA
     Dosage: 15 MG, QD
     Route: 048
     Dates: start: 20090902
  9. BLOPRESS [Concomitant]
     Indication: ESSENTIAL HYPERTENSION
     Dosage: 8 MG, QD
     Route: 048
     Dates: start: 20111109
  10. DAFALGAN [Concomitant]
     Indication: PAIN
     Dosage: 1 MG, BID
     Route: 048
     Dates: start: 20100310
  11. SIMVASTATIN [Concomitant]
     Indication: HYPERLIPIDAEMIA
     Dosage: 20 MG, QD
     Route: 040
     Dates: start: 20090827
  12. SIMVASTATIN [Concomitant]
     Indication: ARTERIOSCLEROSIS
  13. ASPIRIN CARDIO [Concomitant]
     Indication: PROPHYLACTIC CHEMOTHERAPY
     Dosage: 100 MG, QD
     Route: 048
     Dates: start: 20081203
  14. GLUCOPHAGE [Concomitant]
     Indication: TYPE 2 DIABETES MELLITUS
     Dosage: 1000 MG, BID
     Route: 048
     Dates: start: 20081104
  15. SERENOA REPENS FRUIT ETHANOL EXTRACT [Concomitant]
     Indication: BENIGN PROSTATIC HYPERPLASIA
     Dosage: 1 DF, UNK
     Route: 048
     Dates: start: 20130206

REACTIONS (4)
  - Agitation [Recovered/Resolved]
  - Anxiety [Recovered/Resolved]
  - Pain [Recovering/Resolving]
  - Confusional state [Recovered/Resolved]
